FAERS Safety Report 14341836 (Version 1)
Quarter: 2018Q1

REPORT INFORMATION
  Report Type: Other
  Country: FR (occurrence: FR)
  Receive Date: 20180102
  Receipt Date: 20180102
  Transmission Date: 20180509
  Serious: Yes (Other)
  Sender: FDA-Public Use
  Company Number: FR-APOTEX-2017AP023860

PATIENT
  Age: 51 Year
  Sex: Female

DRUGS (1)
  1. DEROXAT [Suspect]
     Active Substance: PAROXETINE HYDROCHLORIDE
     Indication: PRODUCT USED FOR UNKNOWN INDICATION
     Dosage: UNK
     Route: 048

REACTIONS (3)
  - Eczema [Not Recovered/Not Resolved]
  - Rash generalised [Not Recovered/Not Resolved]
  - Eczema vesicular [Not Recovered/Not Resolved]

NARRATIVE: CASE EVENT DATE: 20130615
